FAERS Safety Report 23195449 (Version 1)
Quarter: 2023Q4

REPORT INFORMATION
  Report Type: Report from Study
  Country: CN (occurrence: CN)
  Receive Date: 20231117
  Receipt Date: 20231117
  Transmission Date: 20240109
  Serious: Yes (Hospitalization)
  Sender: FDA-Public Use
  Company Number: US-Coherus Biosciences, Inc.-2023-COH-CN000560

PATIENT

DRUGS (8)
  1. TORIPALIMAB [Suspect]
     Active Substance: TORIPALIMAB
     Indication: Breast cancer
     Dosage: UNK
     Route: 041
     Dates: start: 20230706, end: 20230706
  2. TORIPALIMAB [Suspect]
     Active Substance: TORIPALIMAB
     Dosage: UNK
     Route: 041
     Dates: start: 20230726, end: 20230726
  3. TORIPALIMAB [Suspect]
     Active Substance: TORIPALIMAB
     Dosage: UNK
     Route: 041
     Dates: start: 20230817, end: 20230817
  4. TORIPALIMAB [Suspect]
     Active Substance: TORIPALIMAB
     Dosage: UNK
     Route: 041
     Dates: start: 20230907, end: 20230907
  5. ARX-788 [Suspect]
     Active Substance: ARX-788
     Indication: Breast cancer
     Dosage: UNK
     Route: 041
     Dates: start: 20230706, end: 20230706
  6. ARX-788 [Suspect]
     Active Substance: ARX-788
     Dosage: UNK
     Route: 041
     Dates: start: 20230726, end: 20230726
  7. ARX-788 [Suspect]
     Active Substance: ARX-788
     Dosage: UNK
     Route: 041
     Dates: start: 20230817, end: 20230817
  8. ARX-788 [Suspect]
     Active Substance: ARX-788
     Dosage: UNK
     Route: 041
     Dates: start: 20230907, end: 20230907

REACTIONS (1)
  - Interstitial lung disease [Recovering/Resolving]

NARRATIVE: CASE EVENT DATE: 20230928
